FAERS Safety Report 18889730 (Version 9)
Quarter: 2025Q2

REPORT INFORMATION
  Report Type: Report from Study
  Country: US (occurrence: US)
  Receive Date: 20210213
  Receipt Date: 20250527
  Transmission Date: 20250717
  Serious: Yes (Other)
  Sender: TAKEDA
  Company Number: US-TAKEDA-2021TUS006659

PATIENT
  Age: 9 Year
  Sex: Male
  Weight: 98 kg

DRUGS (29)
  1. IDURSULFASE [Suspect]
     Active Substance: IDURSULFASE
     Indication: Mucopolysaccharidosis II
     Dosage: 48 MILLIGRAM, 1/WEEK
     Dates: start: 20090815
  2. IDURSULFASE [Suspect]
     Active Substance: IDURSULFASE
     Dosage: 48 MILLIGRAM, 1/WEEK
  3. SODIUM CHLORIDE [Concomitant]
     Active Substance: SODIUM CHLORIDE
  4. ACETAMINOPHEN [Concomitant]
     Active Substance: ACETAMINOPHEN
  5. EPINEPHRINE [Concomitant]
     Active Substance: EPINEPHRINE
  6. MELATONIN [Concomitant]
     Active Substance: MELATONIN
  7. MIRALAX [Concomitant]
     Active Substance: POLYETHYLENE GLYCOL 3350
     Dosage: 17 GRAM, QD
  8. SODIUM CHLORIDE [Concomitant]
     Active Substance: SODIUM CHLORIDE
  9. HEPARIN [Concomitant]
     Active Substance: HEPARIN SODIUM
  10. DIPHENHYDRAMINE HYDROCHLORIDE [Concomitant]
     Active Substance: DIPHENHYDRAMINE HYDROCHLORIDE
  11. ALBUTEROL SULFATE [Concomitant]
     Active Substance: ALBUTEROL SULFATE
  12. FLOVENT HFA [Concomitant]
     Active Substance: FLUTICASONE PROPIONATE
  13. LIDOCAINE\PRILOCAINE [Concomitant]
     Active Substance: LIDOCAINE\PRILOCAINE
  14. HEPARIN SODIUM [Concomitant]
     Active Substance: HEPARIN SODIUM
  15. SODIUM FLUORIDE [Concomitant]
     Active Substance: SODIUM FLUORIDE
     Dosage: 2 MILLILITER, QD
  16. FLUBLOK [Concomitant]
     Active Substance: INFLUENZA A VIRUS A/CALIFORNIA/7/2009 (H1N1) RECOMBINANT HEMAGGLUTININ ANTIGEN\INFLUENZA A VIRUS A/V
  17. VITAMIN D [Concomitant]
     Active Substance: VITAMIN D NOS
     Indication: Product used for unknown indication
  18. PFIZER-BIONTECH COVID-19 VACCINE [Concomitant]
     Active Substance: TOZINAMERAN
  19. CEPHALEXIN [Concomitant]
     Active Substance: CEPHALEXIN
  20. DIPHENHYDRAMINE [Concomitant]
     Active Substance: DIPHENHYDRAMINE
  21. FLUAD QUADRIVALENT NOS [Concomitant]
     Active Substance: INFLUENZA A VIRUS A/HONG KONG/2671/2019 IVR-208 (H3N2) ANTIGEN (FORMALDEHYDE INACTIVATED)\INFLUENZA
  22. ZYRTEC [Concomitant]
     Active Substance: CETIRIZINE HYDROCHLORIDE
     Dosage: UNK UNK, QD
  23. FLUTICASONE PROPIONATE [Concomitant]
     Active Substance: FLUTICASONE PROPIONATE
     Dosage: 110 MICROGRAM, BID
  24. ALBUTEROL SULFATE [Concomitant]
     Active Substance: ALBUTEROL SULFATE
  25. MUPIROCIN [Concomitant]
     Active Substance: MUPIROCIN
     Dosage: UNK, BID
  26. EPIPEN [Concomitant]
     Active Substance: EPINEPHRINE
     Indication: Anaphylactic reaction
  27. VENTOLIN HFA [Concomitant]
     Active Substance: ALBUTEROL SULFATE
     Indication: Anaphylactic reaction
  28. IBUPROFEN [Concomitant]
     Active Substance: IBUPROFEN
  29. HYDROXYZINE HYDROCHLORIDE [Concomitant]
     Active Substance: HYDROXYZINE HYDROCHLORIDE

REACTIONS (36)
  - Deafness [Unknown]
  - Restlessness [Not Recovered/Not Resolved]
  - Irritability [Not Recovered/Not Resolved]
  - Abnormal behaviour [Not Recovered/Not Resolved]
  - Pain in extremity [Recovered/Resolved with Sequelae]
  - Paronychia [Recovered/Resolved with Sequelae]
  - Perineal rash [Recovered/Resolved]
  - Crepitations [Unknown]
  - Localised infection [Unknown]
  - Poor quality sleep [Recovered/Resolved]
  - Rash erythematous [Recovered/Resolved]
  - Insomnia [Recovered/Resolved]
  - Swelling [Unknown]
  - Tenderness [Recovered/Resolved]
  - Pain [Recovered/Resolved]
  - Dental caries [Unknown]
  - Dermatitis contact [Recovered/Resolved]
  - Infusion site erythema [Recovered/Resolved]
  - Tooth infection [Recovered/Resolved]
  - Product dose omission issue [Unknown]
  - Product use issue [Recovered/Resolved]
  - Constipation [Unknown]
  - Obstruction [Unknown]
  - Influenza [Recovering/Resolving]
  - Ocular hyperaemia [Unknown]
  - Fatigue [Recovered/Resolved]
  - Ear infection [Unknown]
  - Cough [Recovered/Resolved]
  - Erythema [Recovered/Resolved]
  - Agitation [Unknown]
  - Scoliosis [Unknown]
  - Peripheral swelling [Unknown]
  - Mitral valve disease [Unknown]
  - Walking aid user [Unknown]
  - Dysstasia [Unknown]
  - Hypertension [Unknown]

NARRATIVE: CASE EVENT DATE: 20170101
